FAERS Safety Report 4678804-X (Version None)
Quarter: 2005Q2

REPORT INFORMATION
  Report Type: 
  Country: None (occurrence: None)
  Receive Date: 20050531
  Receipt Date: 20050517
  Transmission Date: 20051028
  Serious: Yes (Hospitalization)
  Sender: FDA-Public Use
  Company Number: 2005BI008107

PATIENT
  Age: 44 Year
  Sex: Female

DRUGS (7)
  1. AVONEX [Suspect]
     Indication: MULTIPLE SCLEROSIS
     Dosage: 30 UG; QW; IM
     Route: 030
     Dates: start: 20010410
  2. AVONEX [Suspect]
     Indication: MULTIPLE SCLEROSIS
     Dosage: 30 UG; QW; IM
     Route: 030
  3. EFFEXOR [Concomitant]
  4. CELEBREX [Concomitant]
  5. DETROL [Concomitant]
  6. CYLERT [Concomitant]
  7. FOLTX [Concomitant]

REACTIONS (6)
  - CONDITION AGGRAVATED [None]
  - FUNGAL INFECTION [None]
  - GASTRITIS [None]
  - MULTIPLE SCLEROSIS [None]
  - OESOPHAGITIS [None]
  - OPTIC NEURITIS [None]
